FAERS Safety Report 9131810 (Version 1)
Quarter: 2013Q1

REPORT INFORMATION
  Report Type: Report from Study
  Country: DE (occurrence: DE)
  Receive Date: 20130301
  Receipt Date: 20130301
  Transmission Date: 20140127
  Serious: Yes (Hospitalization)
  Sender: FDA-Public Use
  Company Number: DE-ABBOTT-13P-062-1054829-00

PATIENT
  Age: 71 Year
  Sex: Female
  Weight: 75 kg

DRUGS (7)
  1. HUMIRA [Suspect]
     Indication: RHEUMATOID ARTHRITIS
     Route: 058
     Dates: start: 20101214, end: 20120831
  2. HUMIRA [Suspect]
     Route: 058
     Dates: start: 20120925
  3. PREDNISOLONE [Concomitant]
     Indication: RHEUMATOID ARTHRITIS
     Dosage: 10-7.5 MG DAILY
  4. METOPROLOL [Concomitant]
     Indication: HYPERTENSION
  5. METFORMIN [Concomitant]
     Indication: TYPE 2 DIABETES MELLITUS
  6. LEFLUNOMID [Concomitant]
     Indication: RHEUMATOID ARTHRITIS
     Dates: end: 2012
  7. METHOTREXATE [Concomitant]
     Indication: RHEUMATOID ARTHRITIS
     Dates: start: 20121121

REACTIONS (1)
  - Osteoarthritis [Unknown]
